FAERS Safety Report 5639121-4 (Version None)
Quarter: 2008Q1

REPORT INFORMATION
  Report Type: 
  Country: None (occurrence: None)
  Receive Date: 20080226
  Receipt Date: 20080215
  Transmission Date: 20080703
  Serious: Yes (Life-Threatening)
  Sender: FDA-Public Use
  Company Number: DE-ELI_LILLY_AND_COMPANY-DE200802004057

PATIENT
  Age: 42 Year
  Sex: Male

DRUGS (2)
  1. CYMBALTA [Suspect]
     Indication: OBSESSIVE-COMPULSIVE DISORDER
     Dosage: 30 MG, UNKNOWN
     Route: 048
     Dates: start: 20080124, end: 20080201
  2. EUNERPAN [Concomitant]
     Dates: start: 20080117

REACTIONS (1)
  - ATRIAL FIBRILLATION [None]
